FAERS Safety Report 6806816-6 (Version None)
Quarter: 2010Q2

REPORT INFORMATION
  Report Type: 
  Country: None (occurrence: None)
  Receive Date: 20100629
  Receipt Date: 20080507
  Transmission Date: 20101027
  Serious: No
  Sender: FDA-Public Use
  Company Number: US-PFIZER INC-2008037031

PATIENT
  Sex: Female
  Weight: 54.5 kg

DRUGS (2)
  1. XANAX [Suspect]
     Indication: PANIC DISORDER
     Route: 048
     Dates: start: 20070101
  2. XANAX [Suspect]
     Indication: ANXIETY

REACTIONS (2)
  - DRUG EFFECT DECREASED [None]
  - DRUG TOLERANCE INCREASED [None]
